FAERS Safety Report 20000631 (Version 1)
Quarter: 2021Q4

REPORT INFORMATION
  Report Type: Spontaneous
  Country: US (occurrence: US)
  Receive Date: 20211026
  Receipt Date: 20211026
  Transmission Date: 20220303
  Serious: Yes (unspecified)
  Sender: FDA-Public Use
  Company Number: None

PATIENT
  Age: 61 Year
  Sex: Female
  Weight: 104.8 kg

DRUGS (1)
  1. VENOFER [Suspect]
     Active Substance: IRON SUCROSE
     Indication: Iron deficiency anaemia
     Dosage: ?          OTHER FREQUENCY:AS NEEDED;
     Route: 041
     Dates: start: 20211012

REACTIONS (2)
  - Rash pruritic [None]
  - Infusion related reaction [None]

NARRATIVE: CASE EVENT DATE: 20211022
